FAERS Safety Report 16890077 (Version 2)
Quarter: 2020Q1

REPORT INFORMATION
  Report Type: Report from Study
  Country: US (occurrence: US)
  Receive Date: 20191007
  Receipt Date: 20200113
  Transmission Date: 20200409
  Serious: Yes (Hospitalization, Other)
  Sender: FDA-Public Use
  Company Number: US-ROCHE-2419403

PATIENT
  Age: 28 Year
  Sex: Female
  Weight: 74 kg

DRUGS (64)
  1. RITUXIMAB. [Suspect]
     Active Substance: RITUXIMAB
     Dosage: INFUSION START DATE: 11:20?INFUSION END DATE :11:50?INFUSION RATE: 50 MG/HOUR
     Route: 042
     Dates: start: 20170411
  2. PREDNISONE. [Suspect]
     Active Substance: PREDNISONE
     Route: 048
     Dates: start: 20170428, end: 20170502
  3. PREDNISONE. [Suspect]
     Active Substance: PREDNISONE
     Route: 048
     Dates: start: 20170531, end: 20170606
  4. PREDNISONE. [Suspect]
     Active Substance: PREDNISONE
     Route: 048
     Dates: start: 20170614, end: 20170620
  5. PREDNISONE. [Suspect]
     Active Substance: PREDNISONE
     Route: 048
     Dates: start: 20170621, end: 20170627
  6. PREDNISONE. [Suspect]
     Active Substance: PREDNISONE
     Route: 048
     Dates: start: 20170628
  7. LISINOPRIL. [Concomitant]
     Active Substance: LISINOPRIL
     Route: 048
  8. ACETAMINOPHEN. [Concomitant]
     Active Substance: ACETAMINOPHEN
     Route: 065
     Dates: start: 20170427
  9. FERROUS SULFATE. [Concomitant]
     Active Substance: FERROUS SULFATE
     Route: 048
  10. ONDANSETRON [Concomitant]
     Active Substance: ONDANSETRON
     Route: 042
     Dates: start: 20170427, end: 20170427
  11. RITUXIMAB. [Suspect]
     Active Substance: RITUXIMAB
     Dosage: INFUSION START DATE: 12:20?INFUSION END DATE :12:50?INFUSION RATE: 150 MG/HOUR
     Route: 042
     Dates: start: 20170411
  12. PREDNISONE. [Suspect]
     Active Substance: PREDNISONE
     Route: 048
     Dates: start: 20170503, end: 20170509
  13. SUMATRIPTAN. [Concomitant]
     Active Substance: SUMATRIPTAN
     Route: 048
  14. RITUXIMAB. [Suspect]
     Active Substance: RITUXIMAB
     Dosage: INFUSION START DATE: 11:09?INFUSION END DATE :11:38?INFUSION RATE: 200 MG/HOUR
     Route: 042
     Dates: start: 20170427
  15. RITUXIMAB. [Suspect]
     Active Substance: RITUXIMAB
     Dosage: INFUSION START DATE: 12:39?INFUSION END DATE :14:30?INFUSION RATE: 400 MG/HOUR
     Route: 042
     Dates: start: 20170427
  16. SOLU-MEDROL [Suspect]
     Active Substance: METHYLPREDNISOLONE SODIUM SUCCINATE
     Route: 042
     Dates: start: 20170427, end: 20170427
  17. PREDNISONE. [Suspect]
     Active Substance: PREDNISONE
     Route: 048
     Dates: start: 20170503, end: 20170509
  18. PREDNISONE. [Suspect]
     Active Substance: PREDNISONE
     Route: 048
     Dates: start: 20170524, end: 20170530
  19. OMEPRAZOLE. [Concomitant]
     Active Substance: OMEPRAZOLE
     Route: 048
  20. POTASSIUM CHLORIDE. [Concomitant]
     Active Substance: POTASSIUM CHLORIDE
     Route: 048
  21. SPIRONOLACTONE. [Concomitant]
     Active Substance: SPIRONOLACTONE
     Route: 048
  22. PLAQUENIL [Concomitant]
     Active Substance: HYDROXYCHLOROQUINE SULFATE
     Route: 065
  23. CARVEDILOL. [Concomitant]
     Active Substance: CARVEDILOL
     Route: 065
  24. RITUXIMAB. [Suspect]
     Active Substance: RITUXIMAB
     Dosage: INFUSION START DATE: 11:50?INFUSION END DATE :12:20?INFUSION RATE: 100 MG/HOUR
     Route: 042
     Dates: start: 20170411
  25. RITUXIMAB. [Suspect]
     Active Substance: RITUXIMAB
     Dosage: INFUSION START DATE: 14:50?INFUSION END DATE :15:20?INFUSION RATE: 400 MG/HOUR
     Route: 042
     Dates: start: 20170411
  26. RITUXIMAB. [Suspect]
     Active Substance: RITUXIMAB
     Dosage: INFUSION START DATE: 11:54?INFUSION END DATE :12:09?INFUSION RATE: 200 MG/HOUR
     Route: 042
     Dates: start: 20170427
  27. BELIMUMAB [Suspect]
     Active Substance: BELIMUMAB
     Indication: LUPUS NEPHRITIS
     Route: 065
  28. BUMEX [Concomitant]
     Active Substance: BUMETANIDE
     Route: 065
  29. AMLODIPINE [Concomitant]
     Active Substance: AMLODIPINE BESYLATE
  30. RITUXIMAB. [Suspect]
     Active Substance: RITUXIMAB
     Indication: LUPUS NEPHRITIS
     Route: 042
     Dates: start: 20170411, end: 20170411
  31. RITUXIMAB. [Suspect]
     Active Substance: RITUXIMAB
     Route: 042
     Dates: start: 20170427, end: 20170427
  32. RITUXIMAB. [Suspect]
     Active Substance: RITUXIMAB
     Dosage: INFUSION START DATE: 13:50?INFUSION END DATE :14:20?INFUSION RATE: 300MG/HOUR
     Route: 042
     Dates: start: 20170411
  33. RITUXIMAB. [Suspect]
     Active Substance: RITUXIMAB
     Dosage: INFUSION START DATE: 14:20?INFUSION END DATE :14:50?INFUSION RATE: 350 MG/HOUR
     Route: 042
     Dates: start: 20170411
  34. PREDNISONE. [Suspect]
     Active Substance: PREDNISONE
     Route: 048
     Dates: start: 20170517, end: 20170523
  35. HYDROXYCHLOROQUINE [Concomitant]
     Active Substance: HYDROXYCHLOROQUINE
     Route: 048
  36. DIPHENHYDRAMINE. [Concomitant]
     Active Substance: DIPHENHYDRAMINE
     Route: 065
     Dates: start: 20170427
  37. RITUXIMAB. [Suspect]
     Active Substance: RITUXIMAB
     Dosage: INFUSION START DATE: 10:39?INFUSION END DATE :11:08?INFUSION RATE: 100 MG/HOUR
     Route: 042
     Dates: start: 20170427
  38. RITUXIMAB. [Suspect]
     Active Substance: RITUXIMAB
     Dosage: INFUSION START DATE: 12:10?INFUSION END DATE :12:38?INFUSION RATE: 300 MG/HOUR
     Route: 042
     Dates: start: 20170427
  39. CYCLOPHOSPHAMIDE. [Suspect]
     Active Substance: CYCLOPHOSPHAMIDE
     Indication: LUPUS NEPHRITIS
     Route: 042
     Dates: start: 20170411, end: 20170411
  40. CYCLOPHOSPHAMIDE. [Suspect]
     Active Substance: CYCLOPHOSPHAMIDE
     Route: 042
     Dates: start: 20170427, end: 20170427
  41. PREDNISONE. [Suspect]
     Active Substance: PREDNISONE
     Route: 048
     Dates: start: 20170510, end: 20170516
  42. CYTOXAN [Suspect]
     Active Substance: CYCLOPHOSPHAMIDE
     Indication: PRODUCT USED FOR UNKNOWN INDICATION
     Dosage: IN NS 500 ML IVPB (6 DOSES, LAST 5/2)
     Route: 065
  43. ALENDRONATE [Suspect]
     Active Substance: ALENDRONATE SODIUM
     Indication: PRODUCT USED FOR UNKNOWN INDICATION
     Route: 065
  44. BUMETANIDE. [Concomitant]
     Active Substance: BUMETANIDE
     Route: 048
  45. ACETAMINOPHEN. [Concomitant]
     Active Substance: ACETAMINOPHEN
     Route: 065
     Dates: start: 20170411
  46. TACROLIMUS. [Concomitant]
     Active Substance: TACROLIMUS
     Route: 048
  47. RITUXIMAB. [Suspect]
     Active Substance: RITUXIMAB
     Dosage: INFUSION START DATE: 12:50?INFUSION END DATE :13:20?INFUSION RATE: 200 MG/HOUR
     Route: 042
     Dates: start: 20170411
  48. RITUXIMAB. [Suspect]
     Active Substance: RITUXIMAB
     Dosage: INFUSION START DATE: 13:20?INFUSION END DATE :13:50?INFUSION RATE: 250 MG/HOUR
     Route: 042
     Dates: start: 20170411
  49. SOLU-MEDROL [Suspect]
     Active Substance: METHYLPREDNISOLONE SODIUM SUCCINATE
     Indication: LUPUS NEPHRITIS
     Dosage: METHYLPREDNISOLONE SODIUM SUCCINATE LAST DOSE 100 MG PRIOR TO SAE ON 27/APR/2017
     Route: 042
     Dates: start: 20170411, end: 20170411
  50. PREDNISONE. [Suspect]
     Active Substance: PREDNISONE
     Indication: LUPUS NEPHRITIS
     Route: 048
     Dates: start: 20170325
  51. PREDNISONE. [Suspect]
     Active Substance: PREDNISONE
     Route: 048
     Dates: start: 20171024
  52. PREDNISONE. [Suspect]
     Active Substance: PREDNISONE
     Route: 048
     Dates: start: 20170325, end: 20170427
  53. DAPSONE. [Suspect]
     Active Substance: DAPSONE
     Indication: PRODUCT USED FOR UNKNOWN INDICATION
     Route: 065
  54. DIAZEPAM. [Concomitant]
     Active Substance: DIAZEPAM
     Route: 048
  55. GABAPENTIN. [Concomitant]
     Active Substance: GABAPENTIN
     Route: 048
  56. ERGOCALCIFEROL. [Concomitant]
     Active Substance: ERGOCALCIFEROL
     Route: 048
  57. DILAUDID [Concomitant]
     Active Substance: HYDROMORPHONE HYDROCHLORIDE
     Route: 048
  58. CLONIDINE. [Concomitant]
     Active Substance: CLONIDINE
  59. RITUXIMAB. [Suspect]
     Active Substance: RITUXIMAB
     Dosage: INFUSION START DATE: 11:39?INFUSION END DATE :11:53?INFUSION RATE: 300 MG/HOUR
     Route: 042
     Dates: start: 20170427
  60. PREDNISONE. [Suspect]
     Active Substance: PREDNISONE
     Route: 048
     Dates: start: 20170607, end: 20170613
  61. VANCOMYCINE [VANCOMYCIN] [Suspect]
     Active Substance: VANCOMYCIN
     Indication: STOMATITIS
     Dosage: TAKEN FO 2.5 WEEKS
     Route: 048
     Dates: start: 201702, end: 201702
  62. MYFORTIC [Concomitant]
     Active Substance: MYCOPHENOLATE SODIUM
  63. MESNA. [Concomitant]
     Active Substance: MESNA
     Route: 042
  64. METHYLPREDNISOLONE. [Concomitant]
     Active Substance: METHYLPREDNISOLONE

REACTIONS (6)
  - Blood albumin decreased [Not Recovered/Not Resolved]
  - Haemoglobin decreased [Recovering/Resolving]
  - Leukopenia [Recovered/Resolved]
  - Hypokalaemia [Recovered/Resolved]
  - Pulmonary alveolar haemorrhage [Recovered/Resolved]
  - Hypertensive emergency [Recovered/Resolved]

NARRATIVE: CASE EVENT DATE: 20170411
